FAERS Safety Report 13163535 (Version 2)
Quarter: 2017Q1

REPORT INFORMATION
  Report Type: Spontaneous
  Country: KR (occurrence: KR)
  Receive Date: 20170130
  Receipt Date: 20170315
  Transmission Date: 20170428
  Serious: Yes (Death, Other)
  Sender: FDA-Public Use
  Company Number: KR-009507513-1701KOR012188

PATIENT
  Age: 66 Year
  Sex: Male
  Weight: 64.8 kg

DRUGS (19)
  1. DEXA (DEXAMETHASONE SODIUM PHOSPHATE) [Concomitant]
     Dosage: STRENGHT 5 MG/ML, 4 MG, ONCE
     Route: 042
     Dates: start: 20160730, end: 20160730
  2. MTX [Concomitant]
     Active Substance: METHOTREXATE SODIUM
     Indication: BLADDER CANCER
     Dosage: STRENGTH 50 MG/2 ML, 35 MG, ONCE
     Route: 042
     Dates: start: 20160728, end: 20160728
  3. VELBASTINE [Concomitant]
     Indication: BLADDER CANCER
     Dosage: 4.86 MG, ONCE
     Route: 042
     Dates: start: 20160729, end: 20160729
  4. ALOXI [Concomitant]
     Active Substance: PALONOSETRON HYDROCHLORIDE
     Indication: PREMEDICATION
     Dosage: 0.25 ML, ONCE
     Route: 042
     Dates: start: 20160729, end: 20160729
  5. VIMOVO [Concomitant]
     Active Substance: ESOMEPRAZOLE MAGNESIUM\NAPROXEN
     Indication: PAIN
     Dosage: 1 TABLET (500/20MG), BID
     Route: 048
     Dates: start: 20160728, end: 20160904
  6. MEGACE [Concomitant]
     Active Substance: MEGESTROL ACETATE
     Indication: DECREASED APPETITE
     Dosage: 1 DF, ONCE
     Route: 048
     Dates: start: 20160730, end: 20160730
  7. CISPLAN [Concomitant]
     Active Substance: CISPLATIN
     Indication: BLADDER CANCER
     Dosage: STRENGTH 50MG/100ML, 64.8 MG, ONCE
     Route: 042
     Dates: start: 20160729, end: 20160729
  8. TYLENOL ER [Concomitant]
     Active Substance: ACETAMINOPHEN
     Indication: PROPHYLAXIS
     Dosage: 2 DF, ONCE
     Route: 048
     Dates: start: 20160727, end: 20160727
  9. MACPERAN [Concomitant]
     Active Substance: METOCLOPRAMIDE HYDROCHLORIDE
     Indication: PROPHYLAXIS OF NAUSEA AND VOMITING
     Dosage: 1 DF, BID
     Route: 048
     Dates: start: 20160805, end: 20160811
  10. EMEND (FOSAPREPITANT DIMEGLUMINE) [Suspect]
     Active Substance: FOSAPREPITANT DIMEGLUMINE
     Indication: PROPHYLAXIS OF NAUSEA AND VOMITING
     Dosage: 150 MG, ONCE
     Route: 042
     Dates: start: 20160729, end: 20160729
  11. ADRIAMYCIN [Concomitant]
     Active Substance: DOXORUBICIN HYDROCHLORIDE
     Indication: BLADDER CANCER
     Dosage: 48.5 MG, ONCE
     Route: 042
     Dates: start: 20160729, end: 20160729
  12. HEPARIN CHOONGWAE [Concomitant]
     Indication: PROPHYLAXIS
     Dosage: 1 ML, ONCE
     Route: 042
     Dates: start: 20160730, end: 20160730
  13. IRCODON [Concomitant]
     Indication: PAIN
     Dosage: 10 MG, QID
     Route: 048
     Dates: start: 20160728, end: 20160904
  14. EMEND (FOSAPREPITANT DIMEGLUMINE) [Suspect]
     Active Substance: FOSAPREPITANT DIMEGLUMINE
     Dosage: 150 MG, ONCE
     Route: 042
     Dates: start: 20160831, end: 20160831
  15. ONDANT [Concomitant]
     Indication: PREMEDICATION
     Dosage: 8 MG, ONCE
     Route: 042
     Dates: start: 20160729, end: 20160729
  16. MEGACE [Concomitant]
     Active Substance: MEGESTROL ACETATE
     Dosage: 1 DF, QD
     Dates: start: 20160801, end: 20160801
  17. COZAAR [Concomitant]
     Active Substance: LOSARTAN POTASSIUM
     Indication: PROPHYLAXIS
     Dosage: 50 MG, QD
     Route: 048
     Dates: start: 20160727, end: 20160730
  18. DEXA (DEXAMETHASONE SODIUM PHOSPHATE) [Concomitant]
     Indication: PREMEDICATION
     Dosage: STRENGHT 5 MG/ML, 7.5 MG, ONCE
     Route: 042
     Dates: start: 20160729, end: 20160729
  19. FERBON [Concomitant]
     Indication: PROPHYLAXIS
     Dosage: STRENGHT 15 MG/ML, 15 ML, ONCE
     Route: 042
     Dates: start: 20160730, end: 20160730

REACTIONS (6)
  - Nausea [Not Recovered/Not Resolved]
  - Constipation [Not Recovered/Not Resolved]
  - Hyperkalaemia [Not Recovered/Not Resolved]
  - Septic shock [Fatal]
  - Haematuria [Not Recovered/Not Resolved]
  - Diarrhoea [Recovered/Resolved]

NARRATIVE: CASE EVENT DATE: 20160805
